FAERS Safety Report 13737695 (Version 1)
Quarter: 2017Q3

REPORT INFORMATION
  Report Type: Spontaneous
  Country: US (occurrence: US)
  Receive Date: 20170710
  Receipt Date: 20170710
  Transmission Date: 20171127
  Serious: Yes (Other)
  Sender: FDA-Public Use
  Company Number: US-SAOL THERAPEUTICS-2016SAO00335

PATIENT
  Age: 54 Year
  Sex: Male
  Weight: 88.44 kg

DRUGS (5)
  1. COMPOUNDED BACLOFEN [Suspect]
     Active Substance: BACLOFEN
     Indication: LUMBAR RADICULOPATHY
     Dosage: UNK
     Route: 037
     Dates: start: 20101229
  2. COMPOUNDED BACLOFEN [Suspect]
     Active Substance: BACLOFEN
     Indication: PAIN
     Dosage: 513.98 ?G, \DAY
     Route: 037
     Dates: start: 201606
  3. COMPOUNDED BACLOFEN [Suspect]
     Active Substance: BACLOFEN
     Dosage: 53.8 ?G, \DAY
     Route: 037
     Dates: start: 20160707
  4. BUPIVACAINE. [Suspect]
     Active Substance: BUPIVACAINE
     Dosage: 0.962 MG, \DAY
     Route: 037
     Dates: start: 20160707
  5. MORPHINE [Suspect]
     Active Substance: MORPHINE
     Dosage: 0.962 MG, \DAY
     Route: 037
     Dates: start: 20160707

REACTIONS (3)
  - Off label use [Unknown]
  - Irritability [Unknown]
  - Device occlusion [Recovered/Resolved]

NARRATIVE: CASE EVENT DATE: 20101229
